FAERS Safety Report 9027953 (Version 2)
Quarter: 2013Q1

REPORT INFORMATION
  Report Type: Spontaneous
  Country: US (occurrence: US)
  Receive Date: 20130123
  Receipt Date: 20130313
  Transmission Date: 20140127
  Serious: No
  Sender: FDA-Public Use
  Company Number: US-PFIZER INC-2013027088

PATIENT
  Age: 2 Year
  Sex: Male
  Weight: 20.41 kg

DRUGS (3)
  1. CHILDRENS ADVIL [Suspect]
     Indication: PYREXIA
     Dosage: UNK
     Route: 048
     Dates: start: 201301, end: 201301
  2. CHILDRENS ADVIL [Suspect]
     Dosage: UNK
     Route: 048
     Dates: start: 20130120
  3. ACETAMINOPHEN [Suspect]
     Indication: PYREXIA
     Dosage: UNK

REACTIONS (1)
  - Drug ineffective [Unknown]
